FAERS Safety Report 11690127 (Version 1)
Quarter: 2015Q4

REPORT INFORMATION
  Report Type: Spontaneous
  Country: US (occurrence: None)
  Receive Date: 20151030
  Receipt Date: 20151030
  Transmission Date: 20160304
  Serious: Yes (Other)
  Sender: FDA-Public Use
  Company Number: None

PATIENT
  Age: 68 Year
  Sex: Female
  Weight: 102.06 kg

DRUGS (4)
  1. MULTIVITAMIN [Concomitant]
     Active Substance: VITAMINS
  2. CLOTRIMAZOLE 1% [Suspect]
     Active Substance: CLOTRIMAZOLE
     Indication: EAR INFECTION FUNGAL
     Dosage: 4 DROPS, INTO THE EAR
     Dates: start: 20151029, end: 20151029
  3. ASPIRIN. [Concomitant]
     Active Substance: ASPIRIN
  4. LEVOXYL [Concomitant]
     Active Substance: LEVOTHYROXINE SODIUM

REACTIONS (4)
  - Instillation site erythema [None]
  - Instillation site vesicles [None]
  - Instillation site pain [None]
  - Instillation site reaction [None]

NARRATIVE: CASE EVENT DATE: 20151029
